FAERS Safety Report 17206730 (Version 1)
Quarter: 2019Q4

REPORT INFORMATION
  Report Type: Spontaneous
  Country: US (occurrence: US)
  Receive Date: 20191227
  Receipt Date: 20191227
  Transmission Date: 20200122
  Serious: No
  Sender: FDA-Public Use
  Company Number: US-MICRO LABS LIMITED-ML2019-03546

PATIENT
  Age: 45 Year
  Sex: Female
  Weight: 65.83 kg

DRUGS (10)
  1. CROMOLYN SODIUM ORAL SOLUTION 100 MG/5 ML [Suspect]
     Active Substance: CROMOLYN SODIUM
     Indication: MAST CELL ACTIVATION SYNDROME
     Dosage: 100MG/5ML X 4 TIMES DAILY
     Route: 048
     Dates: start: 20191030
  2. PIPERAZINE [Concomitant]
     Active Substance: PIPERAZINE
  3. TYLENOL [Concomitant]
     Active Substance: ACETAMINOPHEN
  4. SYMBICORT [Concomitant]
     Active Substance: BUDESONIDE\FORMOTEROL FUMARATE DIHYDRATE
  5. BUDESONIDE. [Concomitant]
     Active Substance: BUDESONIDE
     Dosage: RINSES
  6. LUNESTA [Concomitant]
     Active Substance: ESZOPICLONE
  7. PEPCID [Concomitant]
     Active Substance: FAMOTIDINE
  8. MELOXICAM. [Concomitant]
     Active Substance: MELOXICAM
  9. MONTELUKAST [Concomitant]
     Active Substance: MONTELUKAST SODIUM
  10. METAXALONE. [Concomitant]
     Active Substance: METAXALONE

REACTIONS (3)
  - Oropharyngeal pain [Not Recovered/Not Resolved]
  - Chest discomfort [Not Recovered/Not Resolved]
  - Throat irritation [Not Recovered/Not Resolved]

NARRATIVE: CASE EVENT DATE: 20191030
